FAERS Safety Report 18545826 (Version 1)
Quarter: 2020Q4

REPORT INFORMATION
  Report Type: Report from Study
  Country: CN (occurrence: CN)
  Receive Date: 20201125
  Receipt Date: 20201125
  Transmission Date: 20210114
  Serious: Yes (Other)
  Sender: FDA-Public Use
  Company Number: CN-JNJFOC-20201121313

PATIENT

DRUGS (3)
  1. ARIPIPRAZOLE. [Suspect]
     Active Substance: ARIPIPRAZOLE
     Indication: SCHIZOPHRENIA
     Route: 065
  2. RISPERDAL [Suspect]
     Active Substance: RISPERIDONE
     Indication: SCHIZOPHRENIA
     Route: 065
  3. RISPERDAL [Suspect]
     Active Substance: RISPERIDONE
     Route: 065

REACTIONS (9)
  - Body mass index increased [Unknown]
  - Insomnia [Unknown]
  - Akathisia [Unknown]
  - Incorrect dose administered [Unknown]
  - Off label use [Unknown]
  - Headache [Unknown]
  - Anxiety [Unknown]
  - Tremor [Unknown]
  - Liver injury [Unknown]
